FAERS Safety Report 7831801-5 (Version None)
Quarter: 2011Q4

REPORT INFORMATION
  Report Type: 
  Country: None (occurrence: None)
  Receive Date: 20111021
  Receipt Date: 20111017
  Transmission Date: 20120403
  Serious: Yes (Hospitalization)
  Sender: FDA-Public Use
  Company Number: US-B.I. PHARMACEUTICALS,INC./RIDGEFIELD-2011-BP-22077BP

PATIENT
  Sex: Female

DRUGS (14)
  1. WELCHOL [Concomitant]
     Indication: CROHN'S DISEASE
  2. AMIODARONE HCL [Concomitant]
     Indication: CARDIAC DISORDER
  3. METOPROLOL TARTRATE [Concomitant]
  4. APRISO [Concomitant]
     Indication: CROHN'S DISEASE
  5. ASPIRIN [Concomitant]
  6. FISH OIL [Concomitant]
  7. ACETAMINOPHEN [Concomitant]
  8. FLORESTOR [Concomitant]
  9. PRADAXA [Suspect]
     Indication: ANTICOAGULANT THERAPY
  10. POTASSIUM [Concomitant]
  11. LASIX [Concomitant]
  12. PRADAXA [Suspect]
     Indication: ATRIAL FIBRILLATION
     Dosage: 300 MG
     Route: 048
     Dates: start: 20110803, end: 20110808
  13. PROZAC [Concomitant]
     Indication: DEPRESSION
  14. LEVOTHYROXINE SODIUM [Concomitant]

REACTIONS (3)
  - OESOPHAGEAL SPASM [None]
  - MALAISE [None]
  - NAUSEA [None]
